FAERS Safety Report 8249233-7 (Version None)
Quarter: 2012Q2

REPORT INFORMATION
  Report Type: 
  Country: None (occurrence: None)
  Receive Date: 20120402
  Receipt Date: 20120327
  Transmission Date: 20120825
  Serious: Yes (Other)
  Sender: FDA-Public Use
  Company Number: DE-ACCORD-012902

PATIENT
  Age: 36 Year
  Sex: Male

DRUGS (9)
  1. VINCRISTINE [Suspect]
     Dosage: 6 CYCLES
  2. ETOPOSIDE [Suspect]
     Dosage: SIX CYCLES THEN 4 CYCLES
  3. FLUDARABINE PHOSPHATE [Suspect]
     Dosage: FOUR CYCLES
  4. PREDNISOLONE [Suspect]
     Dosage: SIX CYCLES
  5. BUSULFAN [Suspect]
  6. CARBOPLATIN [Suspect]
     Dosage: FOUR CYCLES
  7. IFOSFAMIDE [Suspect]
     Dosage: FOUR CYCLES
  8. DOXORUBICIN HCL [Suspect]
     Dosage: SIX CYCLES
  9. CYCLOPHOSPHAMIDE [Suspect]
     Dosage: SIX CYCLES AND THEN FOUR CYCLES

REACTIONS (2)
  - OFF LABEL USE [None]
  - CHROMOSOME ANALYSIS ABNORMAL [None]
